FAERS Safety Report 8960473 (Version 1)
Quarter: 2012Q4

REPORT INFORMATION
  Report Type: Spontaneous
  Country: DK (occurrence: None)
  Receive Date: 20121203
  Receipt Date: 20121203
  Transmission Date: 20130627
  Serious: Yes (Life-Threatening)
  Sender: FDA-Public Use
  Company Number: 2012MA013631

PATIENT
  Age: 49 Year
  Sex: Female

DRUGS (2)
  1. PACLITAXEL [Suspect]
     Route: 042
     Dates: start: 20121115, end: 20121115
  2. CARBOPLATIN [Concomitant]

REACTIONS (2)
  - Dyspnoea [None]
  - Hyperhidrosis [None]
